FAERS Safety Report 6139328-6 (Version None)
Quarter: 2009Q2

REPORT INFORMATION
  Report Type: 
  Country: None (occurrence: None)
  Receive Date: 20090401
  Receipt Date: 20090323
  Transmission Date: 20091009
  Serious: Yes (Other)
  Sender: FDA-Public Use
  Company Number: PHHY2009NZ11113

PATIENT
  Age: 44 Year
  Sex: Male

DRUGS (4)
  1. CLOZAPINE [Suspect]
     Dosage: 600 MG DAILY
  2. CLOZAPINE [Suspect]
     Dosage: 300 MG DAILY
  3. OMEPRAZOLE [Interacting]
     Indication: PEPTIC ULCER
  4. OMEPRAZOLE [Interacting]
     Indication: OESOPHAGITIS

REACTIONS (3)
  - ANTIPSYCHOTIC DRUG LEVEL INCREASED [None]
  - CONVULSION [None]
  - DRUG INTERACTION [None]
